FAERS Safety Report 9797929 (Version 3)
Quarter: 2014Q1

REPORT INFORMATION
  Report Type: Spontaneous
  Country: GB (occurrence: GB)
  Receive Date: 20140106
  Receipt Date: 20140127
  Transmission Date: 20141002
  Serious: Yes (Life-Threatening, Hospitalization, Other)
  Sender: FDA-Public Use
  Company Number: PHFR2013GB007324

PATIENT
  Age: 50 Year
  Sex: Male
  Weight: 135.4 kg

DRUGS (15)
  1. CLOZARIL [Suspect]
     Indication: SCHIZOPHRENIA
     Dosage: UNK
     Route: 048
     Dates: start: 20050519
  2. CLOZARIL [Suspect]
     Indication: SCHIZOPHRENIA, PARANOID TYPE
     Dosage: 450 MG, DAILY
     Route: 048
  3. CLOZARIL [Suspect]
     Dosage: 400 MG, DAILY
     Route: 048
  4. AMISULPRIDE [Concomitant]
     Indication: SCHIZOPHRENIA, PARANOID TYPE
     Dosage: 700 MG, DAILY
     Route: 048
  5. LAMOTRIGINE [Concomitant]
     Dosage: 200 MG, DAILY
     Route: 048
  6. MOVICOL [Concomitant]
     Dosage: UNK UKN, UNK
  7. SENNA [Concomitant]
     Dosage: UNK UKN, UNK
  8. CHLORPHENAMINE [Concomitant]
     Dosage: UNK UKN, UNK
  9. DIPROBASE [Concomitant]
     Dosage: UNK UKN, UNK
  10. FERROUS SULPHATE [Concomitant]
     Dosage: UNK UKN, UNK
  11. FESOTERODINE [Concomitant]
     Dosage: UNK UKN, UNK
  12. PIRENZEPINE [Concomitant]
     Dosage: UNK UKN, UNK
  13. SALBUTAMOL [Concomitant]
     Dosage: UNK UKN, UNK
  14. TIOTROPIUM [Concomitant]
     Dosage: UNK UKN, UNK
  15. SIMVASTATIN [Concomitant]
     Dosage: UNK UKN, UNK

REACTIONS (12)
  - Cerebrovascular accident [Unknown]
  - Unresponsive to stimuli [Unknown]
  - Pneumothorax [Recovering/Resolving]
  - Bronchial secretion retention [Recovering/Resolving]
  - Chronic obstructive pulmonary disease [Recovered/Resolved]
  - Pneumonia [Recovered/Resolved]
  - Lower respiratory tract infection [Recovered/Resolved]
  - Malaise [Unknown]
  - Pneumonia aspiration [Unknown]
  - Metabolic syndrome [Not Recovered/Not Resolved]
  - White blood cell count decreased [Recovered/Resolved]
  - Platelet count decreased [Recovered/Resolved]
